FAERS Safety Report 13058823 (Version 7)
Quarter: 2019Q1

REPORT INFORMATION
  Report Type: Report from Study
  Country: JP (occurrence: JP)
  Receive Date: 20161223
  Receipt Date: 20190208
  Transmission Date: 20190417
  Serious: Yes (Other)
  Sender: FDA-Public Use
  Company Number: JP-AMGEN-JPNNI2016181750

PATIENT
  Age: 59 Year
  Sex: Female
  Weight: 55 kg

DRUGS (19)
  1. DOCETAXEL. [Suspect]
     Active Substance: DOCETAXEL
     Indication: BREAST CANCER
     Dosage: 116 MG, QD
     Route: 042
     Dates: start: 20160927, end: 20160927
  2. MUCOSTA [Concomitant]
     Active Substance: REBAMIPIDE
     Indication: PROPHYLAXIS
     Dosage: 100 MG, TID
     Route: 048
     Dates: start: 20161017, end: 20161214
  3. BROTIZOLAM [Concomitant]
     Active Substance: BROTIZOLAM
     Indication: INSOMNIA
     Dosage: 0.25 MG, QD
     Route: 048
     Dates: start: 20160926
  4. PEGFILGRASTIM [Suspect]
     Active Substance: PEGFILGRASTIM
     Dosage: 3.6 MG, UNK
     Route: 058
     Dates: start: 20161109, end: 20161109
  5. DOCETAXEL. [Suspect]
     Active Substance: DOCETAXEL
     Dosage: 116 MG, QD
     Route: 042
     Dates: start: 20161107, end: 20161107
  6. CYCLOPHOSPHAMIDE MONOHYDRATE [Suspect]
     Active Substance: CYCLOPHOSPHAMIDE
     Indication: BREAST CANCER
     Dosage: 928 MG, QD
     Route: 042
     Dates: start: 20160927, end: 20160927
  7. MAGMITT [Concomitant]
     Active Substance: MAGNESIUM OXIDE
     Indication: CONSTIPATION
     Dosage: 500 MG, BID
     Route: 048
     Dates: start: 20161017, end: 20161214
  8. DOCETAXEL. [Suspect]
     Active Substance: DOCETAXEL
     Dosage: 116 MG, QD
     Route: 042
     Dates: start: 20161128, end: 20161128
  9. CYCLOPHOSPHAMIDE MONOHYDRATE [Suspect]
     Active Substance: CYCLOPHOSPHAMIDE
     Dosage: 928 MG, QD
     Route: 042
     Dates: start: 20161017, end: 20161017
  10. LOXONIN [Concomitant]
     Active Substance: LOXOPROFEN SODIUM
     Indication: MYALGIA
     Dosage: 60 MG, TID
     Route: 048
     Dates: start: 20161017, end: 20161214
  11. PEGFILGRASTIM [Suspect]
     Active Substance: PEGFILGRASTIM
     Dosage: 3.6 MG, UNK
     Route: 058
     Dates: start: 20161019, end: 20161019
  12. DOCETAXEL. [Suspect]
     Active Substance: DOCETAXEL
     Dosage: 116 MG, QD
     Route: 042
     Dates: start: 20161017, end: 20161017
  13. DERMOVATE [Concomitant]
     Active Substance: CLOBETASOL
     Indication: ECZEMA
     Dosage: UNK, TID, OINTMENT, CREAM
     Route: 061
     Dates: start: 20161005, end: 20161017
  14. PEGFILGRASTIM [Suspect]
     Active Substance: PEGFILGRASTIM
     Indication: COLONY STIMULATING FACTOR THERAPY
     Dosage: 3.6 MG, UNK
     Route: 058
     Dates: start: 20160929, end: 20160929
  15. CYCLOPHOSPHAMIDE MONOHYDRATE [Suspect]
     Active Substance: CYCLOPHOSPHAMIDE
     Dosage: 928 MG, QD
     Route: 042
     Dates: start: 20161107, end: 20161107
  16. NEU-UP [Suspect]
     Active Substance: UNSPECIFIED INGREDIENT
     Indication: NEUTROPENIA
     Dosage: 100 MG, QD
     Route: 058
     Dates: start: 20161202, end: 20161207
  17. DECADRON [Suspect]
     Active Substance: DEXAMETHASONE
     Indication: PROPHYLAXIS
     Dosage: 8 MG, UNK
     Route: 048
     Dates: start: 20160928, end: 20161201
  18. CYCLOPHOSPHAMIDE MONOHYDRATE [Suspect]
     Active Substance: CYCLOPHOSPHAMIDE
     Dosage: 928 MG, QD
     Route: 042
     Dates: start: 20161128, end: 20161128
  19. CRAVIT [Concomitant]
     Active Substance: LEVOFLOXACIN
     Indication: PYREXIA
     Dosage: 500 MG, QD
     Route: 048
     Dates: start: 20161207, end: 20161212

REACTIONS (8)
  - Myalgia [Recovered/Resolved]
  - Insomnia [Recovered/Resolved]
  - Haematocrit decreased [Not Recovered/Not Resolved]
  - Platelet count increased [Recovered/Resolved]
  - Eczema [Recovered/Resolved]
  - Malaise [Recovered/Resolved]
  - Interstitial lung disease [Recovering/Resolving]
  - Constipation [Recovered/Resolved]

NARRATIVE: CASE EVENT DATE: 20161003
